FAERS Safety Report 5149697-1 (Version None)
Quarter: 2006Q4

REPORT INFORMATION
  Report Type: 
  Country: None (occurrence: None)
  Receive Date: 20061113
  Receipt Date: 20060927
  Transmission Date: 20070319
  Serious: Yes (Hospitalization)
  Sender: FDA-Public Use
  Company Number: JP-ROCHE-464998

PATIENT
  Age: 60 Year
  Sex: Female

DRUGS (9)
  1. DENOSINE IV [Suspect]
     Indication: CYTOMEGALOVIRUS INFECTION
     Route: 041
     Dates: start: 20060818, end: 20060824
  2. MEROPEN [Suspect]
     Route: 041
     Dates: start: 20060822, end: 20060825
  3. NASPALUN [Suspect]
     Route: 042
     Dates: start: 20060816, end: 20060821
  4. OMEPRAL [Concomitant]
     Route: 048
     Dates: start: 20060705
  5. BACTRIM [Concomitant]
     Route: 048
     Dates: start: 20060710
  6. HALIZON [Concomitant]
     Route: 048
  7. DIOVAN [Concomitant]
     Indication: HYPERTENSION
     Route: 048
     Dates: start: 20040615
  8. PREDONINE [Concomitant]
     Route: 048
     Dates: start: 20060710
  9. ALLELOCK [Concomitant]
     Indication: URTICARIA
     Route: 048
     Dates: start: 20060822

REACTIONS (1)
  - BONE MARROW FAILURE [None]
